FAERS Safety Report 7075233-9 (Version None)
Quarter: 2010Q4

REPORT INFORMATION
  Report Type: 
  Country: None (occurrence: None)
  Receive Date: 20101030
  Receipt Date: 20100709
  Transmission Date: 20110411
  Serious: No
  Sender: FDA-Public Use
  Company Number: US-WYE-H16323610

PATIENT
  Age: 55 Year
  Sex: Female
  Weight: 98.97 kg

DRUGS (2)
  1. ADVIL PM [Suspect]
     Indication: MYALGIA
     Dosage: 2 CAPSULES AS NEEDED AT NIGHT
     Route: 048
     Dates: end: 20100601
  2. ADVIL PM [Suspect]
     Indication: INSOMNIA

REACTIONS (2)
  - BALANCE DISORDER [None]
  - DIZZINESS [None]
